FAERS Safety Report 5269877-4 (Version None)
Quarter: 2007Q1

REPORT INFORMATION
  Report Type: 
  Country: None (occurrence: None)
  Receive Date: 20070320
  Receipt Date: 20070313
  Transmission Date: 20070707
  Serious: Yes (Hospitalization)
  Sender: FDA-Public Use
  Company Number: JP-JPN-A200701019

PATIENT
  Age: 38 Year
  Sex: Male

DRUGS (7)
  1. PAXIL [Suspect]
     Indication: DEPRESSION
     Dosage: 20MG PER DAY
     Route: 048
     Dates: start: 20061020
  2. LENDORMIN [Concomitant]
     Route: 048
  3. ETHYL LOFLAZEPATE [Concomitant]
     Route: 048
  4. UNSPECIFIED MEDICATION [Concomitant]
     Route: 048
  5. UNSPECIFIED MEDICATION [Concomitant]
     Route: 048
  6. PROHEPARUM [Concomitant]
     Route: 048
  7. CHLORPROMAZINE HYDROCHLORIDE [Concomitant]
     Route: 048

REACTIONS (3)
  - DEPRESSION [None]
  - INTENTIONAL OVERDOSE [None]
  - SELF INJURIOUS BEHAVIOUR [None]
